FAERS Safety Report 5053284-3 (Version None)
Quarter: 2006Q3

REPORT INFORMATION
  Report Type: 
  Country: None (occurrence: None)
  Receive Date: 20060712
  Receipt Date: 20060630
  Transmission Date: 20061208
  Serious: Yes (Other)
  Sender: FDA-Public Use
  Company Number: 2006-02664

PATIENT
  Sex: Male

DRUGS (6)
  1. ANDRODERM [Suspect]
     Dosage: 5 MG, TRANSDERMAL
     Route: 062
     Dates: start: 20060201, end: 20060406
  2. TESTOSTERONE                      (TESTOSTERONE) GEL [Suspect]
     Dosage: TOPICAL
     Route: 061
     Dates: start: 20060413, end: 20060414
  3. BENDROFLUAZIDE (BENDROFLUMETHIAZIDE) [Concomitant]
  4. LANSOPRAZOLE [Concomitant]
  5. LATANOPROST [Concomitant]
  6. LOSARTAN POTASSIUM [Concomitant]

REACTIONS (4)
  - BLISTER [None]
  - ERYTHEMA [None]
  - SKIN INFLAMMATION [None]
  - SKIN REACTION [None]
